FAERS Safety Report 7197464-X (Version None)
Quarter: 2010Q4

REPORT INFORMATION
  Report Type: 
  Country: None (occurrence: None)
  Receive Date: 20101227
  Receipt Date: 20101221
  Transmission Date: 20110411
  Serious: Yes (Death, Other)
  Sender: FDA-Public Use
  Company Number: MX-BRISTOL-MYERS SQUIBB COMPANY-15457377

PATIENT
  Age: 57 Year
  Sex: Female

DRUGS (2)
  1. COAPROVEL TABS 300MG/ 25MG [Suspect]
     Indication: HYPERTENSION
     Route: 048
     Dates: start: 20090101, end: 20100101
  2. HUMALOG [Concomitant]
     Indication: DIABETES MELLITUS
     Dosage: HUMALOG MIX 25(75 IU OF INSULIN LISPRO PROTAMINE AND 25 IU OF INSULIN LISPRO/ML,INJECTABLE)
     Route: 058
     Dates: end: 20100101

REACTIONS (2)
  - MULTI-ORGAN FAILURE [None]
  - OEDEMA PERIPHERAL [None]
